FAERS Safety Report 24299126 (Version 1)
Quarter: 2024Q3

REPORT INFORMATION
  Report Type: Spontaneous
  Country: HR (occurrence: HR)
  Receive Date: 20240909
  Receipt Date: 20240909
  Transmission Date: 20241016
  Serious: Yes (Hospitalization, Other)
  Sender: SANDOZ
  Company Number: HR-002147023-PHHY2011HR79915

PATIENT
  Age: 31 Year
  Sex: Female

DRUGS (45)
  1. ALPRAZOLAM [Suspect]
     Active Substance: ALPRAZOLAM
     Indication: Persistent depressive disorder
     Dosage: 0.5 MG, TID
     Route: 065
     Dates: start: 200805
  2. BUPRENORPHINE [Suspect]
     Active Substance: BUPRENORPHINE
     Indication: Bradyphrenia
     Dosage: 70 MG, Q72H
     Route: 065
     Dates: start: 200904
  3. BACLOFEN [Suspect]
     Active Substance: BACLOFEN
     Indication: Pain
     Dosage: 10 MG, TID
     Route: 065
     Dates: start: 200709
  4. BACLOFEN [Suspect]
     Active Substance: BACLOFEN
     Dosage: 25 MG, TID
     Route: 065
     Dates: start: 200805
  5. BACLOFEN [Suspect]
     Active Substance: BACLOFEN
     Dosage: 25 MG, TID
     Route: 065
     Dates: start: 200904
  6. BACLOFEN [Suspect]
     Active Substance: BACLOFEN
     Dosage: 25 MG, TID
     Route: 065
     Dates: start: 201003
  7. DIAZEPAM [Suspect]
     Active Substance: DIAZEPAM
     Dosage: DOSE: 2 MG, 2 MG, 5 MG QD
     Route: 065
     Dates: start: 201003
  8. DIAZEPAM [Suspect]
     Active Substance: DIAZEPAM
     Indication: Pain
     Dosage: 5 MG, QD
     Route: 065
     Dates: start: 200709
  9. ESOMEPRAZOLE [Suspect]
     Active Substance: ESOMEPRAZOLE
     Indication: Asthenia
     Dosage: 20 MG, BID
     Route: 065
     Dates: start: 201003
  10. FENTANYL [Suspect]
     Active Substance: FENTANYL\FENTANYL CITRATE
     Indication: Pain
     Dosage: 100 UG/72 H, UNK
     Route: 062
     Dates: start: 201003
  11. FEXOFENADINE HYDROCHLORIDE [Suspect]
     Active Substance: FEXOFENADINE HYDROCHLORIDE
     Indication: Headache
     Dosage: 180 MG
     Route: 065
     Dates: start: 201003
  12. GABAPENTIN [Suspect]
     Active Substance: GABAPENTIN
     Indication: Mental disorder
     Dosage: 300 MG, QD
     Route: 065
     Dates: start: 200904
  13. GABAPENTIN [Suspect]
     Active Substance: GABAPENTIN
     Dosage: 300 MG, QD
     Route: 065
     Dates: start: 200904
  14. GINKGO [Suspect]
     Active Substance: GINKGO
     Indication: Rash
     Dosage: 120 MG
     Route: 065
     Dates: start: 201003
  15. GINKGO [Suspect]
     Active Substance: GINKGO
     Indication: Pain
  16. IBUPROFEN [Suspect]
     Active Substance: IBUPROFEN
     Indication: Pain
     Dosage: 400 MG
     Route: 065
     Dates: start: 200703
  17. LEVOTHYROXINE SODIUM [Suspect]
     Active Substance: LEVOTHYROXINE SODIUM
     Indication: Quadriparesis
     Dosage: 50 UG
     Route: 065
     Dates: start: 200703
  18. LEVOTHYROXINE SODIUM [Suspect]
     Active Substance: LEVOTHYROXINE SODIUM
     Dosage: 50 UG
     Route: 065
     Dates: start: 200709
  19. LEVOTHYROXINE SODIUM [Suspect]
     Active Substance: LEVOTHYROXINE SODIUM
     Dosage: 50 UG
     Route: 065
     Dates: start: 200805
  20. LEVOTHYROXINE SODIUM [Suspect]
     Active Substance: LEVOTHYROXINE SODIUM
     Dosage: 50 UG
     Route: 065
     Dates: start: 200904
  21. LEVOTHYROXINE SODIUM [Suspect]
     Active Substance: LEVOTHYROXINE SODIUM
     Dosage: 50 UG
     Route: 065
     Dates: start: 201003
  22. LEVOTHYROXINE SODIUM [Suspect]
     Active Substance: LEVOTHYROXINE SODIUM
     Dosage: 50 UG
     Route: 065
  23. LEVOTHYROXINE SODIUM [Suspect]
     Active Substance: LEVOTHYROXINE SODIUM
     Indication: Pain
     Dosage: 75 UG
     Route: 065
     Dates: start: 200703
  24. NEUROBION FORTE [Suspect]
     Active Substance: CYANOCOBALAMIN\PYRIDOXINE HYDROCHLORIDE\THIAMINE DISULFIDE
     Indication: Asthenia
     Dosage: 2 DF, 2 X 1 TABLET
     Route: 065
     Dates: start: 200805
  25. NEUROBION FORTE [Suspect]
     Active Substance: CYANOCOBALAMIN\PYRIDOXINE HYDROCHLORIDE\THIAMINE DISULFIDE
     Indication: Pain
  26. OXYCODONE [Suspect]
     Active Substance: OXYCODONE
     Indication: Pain
     Dosage: 10 MG, TID
     Route: 065
     Dates: start: 200904
  27. OXYCODONE [Suspect]
     Active Substance: OXYCODONE
     Dosage: MAR10 10MG PP
     Route: 065
     Dates: start: 201003
  28. OXYCODONE [Suspect]
     Active Substance: OXYCODONE
     Dosage: 13 MG
     Route: 065
     Dates: start: 201003
  29. PANTOPRAZOLE [Suspect]
     Active Substance: PANTOPRAZOLE
     Indication: Product used for unknown indication
     Dosage: 20 MG
     Route: 065
     Dates: start: 200904
  30. ACETAMINOPHEN\TRAMADOL HYDROCHLORIDE [Suspect]
     Active Substance: ACETAMINOPHEN\TRAMADOL HYDROCHLORIDE
     Indication: Pain
     Dosage: 2 DF, TID (TRAMADOL 37.5MG/PARACETAMOL 325MG)
     Route: 065
     Dates: start: 200709
  31. ACETAMINOPHEN\TRAMADOL HYDROCHLORIDE [Suspect]
     Active Substance: ACETAMINOPHEN\TRAMADOL HYDROCHLORIDE
     Dosage: 2 DF, TID (TRAMADOL 37.5MG/PARACETAMOL 325MG)
     Route: 065
     Dates: start: 200805
  32. ACETAMINOPHEN\TRAMADOL HYDROCHLORIDE [Suspect]
     Active Substance: ACETAMINOPHEN\TRAMADOL HYDROCHLORIDE
     Dosage: 2 DF, TID (TRAMADOL 37.5MG/PARACETAMOL 325MG)
     Route: 065
     Dates: start: 200904
  33. ACETAMINOPHEN\TRAMADOL HYDROCHLORIDE [Suspect]
     Active Substance: ACETAMINOPHEN\TRAMADOL HYDROCHLORIDE
     Dosage: UNK (PP)
     Route: 065
     Dates: start: 201003
  34. PREGABALIN [Suspect]
     Active Substance: PREGABALIN
     Indication: Pain
     Dosage: 300 MG, BID
     Route: 065
     Dates: start: 201003
  35. PIROXICAM [Suspect]
     Active Substance: PIROXICAM
     Indication: Musculoskeletal stiffness
     Dosage: 20 MG
     Route: 065
     Dates: start: 200709
  36. PIROXICAM [Suspect]
     Active Substance: PIROXICAM
     Indication: Pain
  37. RANITIDINE [Suspect]
     Active Substance: RANITIDINE
     Indication: Product used for unknown indication
     Dosage: UNK, DOSE: 2X150 MG
     Route: 065
     Dates: start: 200709
  38. SERTRALINE HYDROCHLORIDE [Suspect]
     Active Substance: SERTRALINE HYDROCHLORIDE
     Indication: Pain
     Dosage: 1 DF
     Route: 065
     Dates: start: 200805
  39. SERTRALINE HYDROCHLORIDE [Suspect]
     Active Substance: SERTRALINE HYDROCHLORIDE
     Indication: Headache
     Dosage: 50 MG, QD
     Route: 065
     Dates: start: 200805
  40. SERTRALINE HYDROCHLORIDE [Suspect]
     Active Substance: SERTRALINE HYDROCHLORIDE
     Dosage: DOSE: 50 MG 1X1
     Route: 065
     Dates: start: 200904
  41. SERTRALINE HYDROCHLORIDE [Suspect]
     Active Substance: SERTRALINE HYDROCHLORIDE
     Indication: Pain
     Dosage: 50 MG, QD
     Route: 065
     Dates: start: 200805
  42. NEUROBION FORTE [Concomitant]
     Active Substance: CYANOCOBALAMIN\PYRIDOXINE HYDROCHLORIDE\THIAMINE DISULFIDE
     Indication: Asthenia
     Dosage: 2 DOSAGE FORM, 2 X 1 TABLET
     Route: 065
     Dates: start: 200805
  43. NEUROBION FORTE [Concomitant]
     Active Substance: CYANOCOBALAMIN\PYRIDOXINE HYDROCHLORIDE\THIAMINE DISULFIDE
     Indication: Pain
  44. TRAMADOL [Concomitant]
     Active Substance: TRAMADOL\TRAMADOL HYDROCHLORIDE
     Indication: Pain
     Dosage: 37.5 MG, TID
     Route: 065
     Dates: start: 200805
  45. CARBAMAZEPINE [Interacting]
     Active Substance: CARBAMAZEPINE
     Indication: Pain
     Dosage: 200 MG, TID
     Route: 065
     Dates: start: 200709

REACTIONS (41)
  - Diplopia [Unknown]
  - Schizophrenia [Unknown]
  - Anxiety [Unknown]
  - Depression [Unknown]
  - Neurosis [Unknown]
  - Quadriparesis [Unknown]
  - Syncope [Unknown]
  - Dizziness [Unknown]
  - Sedation [Unknown]
  - Vomiting [Unknown]
  - Asthenia [Unknown]
  - Pain [Unknown]
  - Loss of consciousness [Unknown]
  - Euphoric mood [Unknown]
  - Psychomotor skills impaired [Unknown]
  - Fatigue [Unknown]
  - Condition aggravated [Unknown]
  - Sensory disturbance [Unknown]
  - Erythema [Unknown]
  - Oedema [Unknown]
  - Musculoskeletal stiffness [Unknown]
  - Pruritus [Unknown]
  - Headache [Unknown]
  - Gastrointestinal motility disorder [Unknown]
  - Constipation [Unknown]
  - Persistent depressive disorder [Unknown]
  - Feeling abnormal [Unknown]
  - Nausea [Unknown]
  - Cognitive disorder [Unknown]
  - Disturbance in attention [Unknown]
  - Conversion disorder [Unknown]
  - Confusional state [Unknown]
  - Neurosis [Unknown]
  - Pain [Unknown]
  - Asthenia [Unknown]
  - Disturbance in attention [Unknown]
  - Rash [Unknown]
  - Asthenia [Unknown]
  - Ataxia [Unknown]
  - Pain [Unknown]
  - Ill-defined disorder [Unknown]
